FAERS Safety Report 5746483-6 (Version None)
Quarter: 2008Q2

REPORT INFORMATION
  Report Type: 
  Country: None (occurrence: None)
  Receive Date: 20080520
  Receipt Date: 20080520
  Transmission Date: 20081010
  Serious: No
  Sender: FDA-Public Use
  Company Number: None

PATIENT
  Age: 43 Year
  Sex: Male
  Weight: 70 kg

DRUGS (1)
  1. RIFIDIN [Suspect]

REACTIONS (6)
  - BACTERIAL INFECTION [None]
  - CHEST PAIN [None]
  - HEPATIC ENZYME INCREASED [None]
  - LIVER DISORDER [None]
  - RENAL FAILURE [None]
  - X-RAY ABNORMAL [None]
